FAERS Safety Report 21196725 (Version 1)
Quarter: 2022Q3

REPORT INFORMATION
  Report Type: Spontaneous
  Country: IT (occurrence: IT)
  Receive Date: 20220810
  Receipt Date: 20220810
  Transmission Date: 20221027
  Serious: Yes (Other)
  Sender: FDA-Public Use
  Company Number: IT-JAZZ-2021-IT-017404

PATIENT
  Age: 65 Year
  Sex: Female

DRUGS (2)
  1. VYXEOS [Suspect]
     Active Substance: CYTARABINE\DAUNORUBICIN
     Indication: Acute myeloid leukaemia
     Dosage: INDUCTION
     Dates: start: 2020, end: 2020
  2. VYXEOS [Suspect]
     Active Substance: CYTARABINE\DAUNORUBICIN
     Dosage: CONSOLIDATION
     Dates: start: 2020, end: 2020

REACTIONS (2)
  - Febrile neutropenia [Unknown]
  - Stenotrophomonas sepsis [Unknown]

NARRATIVE: CASE EVENT DATE: 20200101
